FAERS Safety Report 18459084 (Version 3)
Quarter: 2022Q3

REPORT INFORMATION
  Report Type: Spontaneous
  Country: US (occurrence: US)
  Receive Date: 20201103
  Receipt Date: 20220909
  Transmission Date: 20221026
  Serious: Yes (Hospitalization)
  Sender: FDA-Public Use
  Company Number: US-TAKEDA-US202034679

PATIENT
  Age: 64 Year
  Sex: Female

DRUGS (16)
  1. VYVANSE [Suspect]
     Active Substance: LISDEXAMFETAMINE DIMESYLATE
     Indication: Obsessive-compulsive disorder
     Dosage: 20 MILLIGRAM
     Route: 065
     Dates: start: 20190901
  2. VYVANSE [Suspect]
     Active Substance: LISDEXAMFETAMINE DIMESYLATE
     Indication: Bipolar disorder
     Dosage: 50 MILLIGRAM
     Route: 065
     Dates: start: 20190901
  3. VYVANSE [Suspect]
     Active Substance: LISDEXAMFETAMINE DIMESYLATE
     Indication: Anxiety
     Dosage: 60 MILLIGRAM
     Route: 065
  4. VYVANSE [Suspect]
     Active Substance: LISDEXAMFETAMINE DIMESYLATE
     Indication: Depression
     Dosage: 10 MILLIGRAM
     Route: 065
  5. VYVANSE [Suspect]
     Active Substance: LISDEXAMFETAMINE DIMESYLATE
     Indication: Attention deficit hyperactivity disorder
     Dosage: 70 MILLIGRAM
     Route: 065
  6. VALIUM [Suspect]
     Active Substance: DIAZEPAM
     Indication: Pain in extremity
     Dosage: UNK
     Route: 065
  7. ARIPIPRAZOLE [Suspect]
     Active Substance: ARIPIPRAZOLE
     Indication: Bipolar disorder
     Dosage: UNK
     Route: 065
     Dates: start: 202110, end: 202203
  8. ABILIFY [Suspect]
     Active Substance: ARIPIPRAZOLE
     Indication: Bipolar disorder
     Dosage: 2 MILLIGRAM
     Route: 048
     Dates: start: 202204
  9. ADDERALL [Concomitant]
     Active Substance: AMPHETAMINE ASPARTATE\AMPHETAMINE SULFATE\DEXTROAMPHETAMINE SACCHARATE\DEXTROAMPHETAMINE SULFATE
     Dosage: UNK
  10. ZOLOFT [Concomitant]
     Active Substance: SERTRALINE HYDROCHLORIDE
     Dosage: UNK
  11. BERBERINE [Concomitant]
     Active Substance: BERBERINE
     Dosage: UNK
  12. LUVOX [Concomitant]
     Active Substance: FLUVOXAMINE MALEATE
     Dosage: UNK
  13. GLUTEN [Concomitant]
     Active Substance: WHEAT GLUTEN
     Dosage: UNK
  14. FERRIC OXIDE RED [Concomitant]
     Active Substance: FERRIC OXIDE RED
     Dosage: UNK
  15. DIAZEPAM [Concomitant]
     Active Substance: DIAZEPAM
     Dosage: UNK
  16. BENZTROPINE MESYLATE [Concomitant]
     Active Substance: BENZTROPINE MESYLATE

REACTIONS (22)
  - Psychotic disorder [Recovering/Resolving]
  - COVID-19 [Unknown]
  - Sciatica [Not Recovered/Not Resolved]
  - Pain in extremity [Not Recovered/Not Resolved]
  - Product use in unapproved indication [Unknown]
  - Migraine [Unknown]
  - Nervousness [Unknown]
  - Therapeutic product effect decreased [Unknown]
  - Anosmia [Unknown]
  - Eye pain [Recovered/Resolved]
  - Irritable bowel syndrome [Unknown]
  - Back pain [Unknown]
  - Nausea [Unknown]
  - Constipation [Unknown]
  - Weight decreased [Unknown]
  - Headache [Unknown]
  - Depression [Recovered/Resolved]
  - Abdominal pain upper [Unknown]
  - Euphoric mood [Unknown]
  - Drug ineffective for unapproved indication [Unknown]
  - Malaise [Unknown]
  - Palpitations [Unknown]

NARRATIVE: CASE EVENT DATE: 20200201
